FAERS Safety Report 7197098-7 (Version None)
Quarter: 2010Q4

REPORT INFORMATION
  Report Type: 
  Country: None (occurrence: None)
  Receive Date: 20101224
  Receipt Date: 20101217
  Transmission Date: 20110411
  Serious: Yes (Hospitalization, Other)
  Sender: FDA-Public Use
  Company Number: US-AMGEN-USASP2010010008

PATIENT

DRUGS (8)
  1. EPOGEN [Suspect]
     Indication: RENAL FAILURE CHRONIC
     Dosage: 28000 UNIT, UNK
     Route: 042
     Dates: end: 20101217
  2. NEPHROCAPS [Concomitant]
  3. LISINOPRIL [Concomitant]
  4. VITAMIN E                          /00110501/ [Concomitant]
  5. VITAMIN C                          /00008001/ [Concomitant]
  6. LEVOTHYROXINE [Concomitant]
  7. PREDNISONE [Concomitant]
  8. L-CARNITINE [Concomitant]

REACTIONS (3)
  - ACINETOBACTER BACTERAEMIA [None]
  - PANCYTOPENIA [None]
  - STAPHYLOCOCCAL BACTERAEMIA [None]
